FAERS Safety Report 8814256 (Version 2)
Quarter: 2012Q4

REPORT INFORMATION
  Report Type: Report from Study
  Country: DK (occurrence: DK)
  Receive Date: 20120928
  Receipt Date: 20121003
  Transmission Date: 20130627
  Serious: Yes (Life-Threatening, Hospitalization)
  Sender: FDA-Public Use
  Company Number: DK-SANOFI-AVENTIS-2012SA063439

PATIENT
  Age: 73 Year
  Sex: Male
  Weight: 86.7 kg

DRUGS (5)
  1. CABAZITAXEL [Suspect]
     Indication: PROSTATE CANCER METASTATIC
     Route: 042
     Dates: start: 20120718, end: 20120718
  2. CABAZITAXEL [Suspect]
     Indication: PROSTATE CANCER METASTATIC
     Route: 042
     Dates: start: 20120808, end: 20120808
  3. PREDNISONE [Suspect]
     Indication: PROSTATE CANCER METASTATIC
     Route: 048
     Dates: start: 20120718, end: 20120829
  4. DICLOFENAC [Concomitant]
     Route: 048
  5. PARACETAMOL [Concomitant]
     Route: 048

REACTIONS (1)
  - Gastric perforation [Recovered/Resolved]
